FAERS Safety Report 5233242-6 (Version None)
Quarter: 2007Q1

REPORT INFORMATION
  Report Type: 
  Country: None (occurrence: None)
  Receive Date: 20070206
  Receipt Date: 20070126
  Transmission Date: 20070707
  Serious: Yes (Hospitalization, Other)
  Sender: FDA-Public Use
  Company Number: MEDI-0005245

PATIENT
  Age: 35 Year
  Sex: Female
  Weight: 59.4212 kg

DRUGS (9)
  1. ETHYOL [Suspect]
     Indication: PROPHYLAXIS
     Dosage: 1400 MG, 1 IN 1 WK, INTRAVENOUS (NOT OTHERWISE SPECIFIED)
     Route: 042
     Dates: start: 20061122, end: 20061218
  2. CISPLATIN [Suspect]
     Indication: CERVIX CARCINOMA
     Dosage: 62 MG, 1 IN 1 WK
     Dates: start: 20061101, end: 20061218
  3. RADIATION THERAPY [Concomitant]
  4. DECADRON [Concomitant]
  5. COMPAZINE [Concomitant]
  6. AMPICILLIN [Concomitant]
  7. LEVAQUIN [Concomitant]
  8. FLAGYL [Concomitant]
  9. NYSTATIN [Concomitant]

REACTIONS (5)
  - NEUTROPENIA [None]
  - ORAL CANDIDIASIS [None]
  - PLATELET COUNT DECREASED [None]
  - URINARY TRACT INFECTION [None]
  - WHITE BLOOD CELL COUNT DECREASED [None]
